FAERS Safety Report 16963440 (Version 1)
Quarter: 2019Q4

REPORT INFORMATION
  Report Type: Spontaneous
  Country: US (occurrence: US)
  Receive Date: 20191025
  Receipt Date: 20191025
  Transmission Date: 20200122
  Serious: No
  Sender: FDA-Public Use
  Company Number: US-TEVA-2019-US-1127030

PATIENT

DRUGS (1)
  1. LIDOCAINE TRANSDERMAL PATCH 5% [Suspect]
     Active Substance: LIDOCAINE
     Route: 062

REACTIONS (4)
  - Product adhesion issue [Unknown]
  - Skin irritation [Unknown]
  - Application site erythema [Unknown]
  - Device leakage [Unknown]
